FAERS Safety Report 25749624 (Version 3)
Quarter: 2025Q4

REPORT INFORMATION
  Report Type: Spontaneous
  Country: US (occurrence: US)
  Receive Date: 20250902
  Receipt Date: 20251002
  Transmission Date: 20260118
  Serious: No
  Sender: TAKEDA
  Company Number: US-TAKEDA-2025TUS074894

PATIENT
  Sex: Male
  Weight: 109 kg

DRUGS (10)
  1. ENTYVIO [Suspect]
     Active Substance: VEDOLIZUMAB
     Indication: Crohn^s disease
     Dosage: 108 MILLIGRAM, Q2WEEKS
     Dates: start: 20250723
  2. ENTYVIO [Suspect]
     Active Substance: VEDOLIZUMAB
     Dosage: 108 MILLIGRAM, Q2WEEKS
  3. VITAMIN B12 [Concomitant]
     Active Substance: CYANOCOBALAMIN
     Dosage: 1000 MICROGRAM
  4. UNSPECIFIED INGREDIENT [Concomitant]
     Active Substance: UNSPECIFIED INGREDIENT
     Indication: Hypersensitivity
     Dosage: UNK
  5. TIMOLOL MALEATE [Concomitant]
     Active Substance: TIMOLOL MALEATE
     Dosage: UNK UNK, QD
  6. PREGABALIN [Concomitant]
     Active Substance: PREGABALIN
     Dosage: 50 MILLIGRAM
  7. VITAMIN D3 [Concomitant]
     Active Substance: CHOLECALCIFEROL
     Dosage: 2000 INTERNATIONAL UNIT
  8. AMLODIPINE [Concomitant]
     Active Substance: AMLODIPINE BESYLATE
     Dosage: 2.5 MILLIGRAM
  9. LOSARTAN [Concomitant]
     Active Substance: LOSARTAN
     Dosage: 12.5 MILLIGRAM
  10. LATANOPROST [Concomitant]
     Active Substance: LATANOPROST
     Dosage: UNK UNK, QD

REACTIONS (4)
  - Injection site discharge [Unknown]
  - Injection site haemorrhage [Unknown]
  - Device malfunction [Unknown]
  - Product dose omission issue [Unknown]
